FAERS Safety Report 21442343 (Version 1)
Quarter: 2022Q4

REPORT INFORMATION
  Report Type: Spontaneous
  Country: US (occurrence: None)
  Receive Date: 20221010
  Receipt Date: 20221010
  Transmission Date: 20230113
  Serious: Yes (Hospitalization)
  Sender: FDA-Public Use
  Company Number: None

PATIENT
  Age: 62 Year
  Sex: Female
  Weight: 101.0 kg

DRUGS (10)
  1. VISUDYNE [Suspect]
     Active Substance: VERTEPORFIN
     Indication: Glioblastoma
     Dates: start: 20220328
  2. AMLODIPINE [Concomitant]
     Active Substance: AMLODIPINE BESYLATE
     Dates: start: 20220906
  3. ATORVASTATIN [Concomitant]
     Active Substance: ATORVASTATIN
     Dates: start: 20220823
  4. DEXAMETHASONE [Concomitant]
     Active Substance: DEXAMETHASONE
     Dates: start: 20220920
  5. levetracetam [Concomitant]
     Dates: start: 20220913
  6. METFORMIN [Concomitant]
     Active Substance: METFORMIN HYDROCHLORIDE
     Dates: start: 20220419
  7. ONDANSETRON [Concomitant]
     Active Substance: ONDANSETRON
     Dates: start: 20220920
  8. PANTOPRAZOLE [Concomitant]
     Active Substance: PANTOPRAZOLE
     Dates: start: 20220920
  9. OXYCODONE [Concomitant]
     Active Substance: OXYCODONE
     Dates: start: 20220921
  10. VIAGRA [Concomitant]
     Active Substance: SILDENAFIL CITRATE
     Dates: start: 20220726

REACTIONS (4)
  - Asthenia [None]
  - Fall [None]
  - Head injury [None]
  - Confusional state [None]

NARRATIVE: CASE EVENT DATE: 20221006
